FAERS Safety Report 24821786 (Version 4)
Quarter: 2025Q2

REPORT INFORMATION
  Report Type: Spontaneous
  Country: US (occurrence: US)
  Receive Date: 20250108
  Receipt Date: 20250527
  Transmission Date: 20250717
  Serious: No
  Sender: SANOFI AVENTIS
  Company Number: US-SA-2025SA005753

PATIENT
  Age: 12 Year
  Sex: Male
  Weight: 44 kg

DRUGS (1)
  1. DUPIXENT [Suspect]
     Active Substance: DUPILUMAB
     Indication: Eosinophilic oesophagitis
     Dosage: 300 MG, QW
     Route: 058

REACTIONS (6)
  - Oesophageal discomfort [Unknown]
  - Injection site mass [Unknown]
  - Injection site pain [Unknown]
  - Medical procedure [Unknown]
  - Therapeutic response unexpected [Unknown]
  - Product dose omission issue [Unknown]

NARRATIVE: CASE EVENT DATE: 20240101
